FAERS Safety Report 8984188 (Version 1)
Quarter: 2012Q4

REPORT INFORMATION
  Report Type: 
  Country: CA (occurrence: CA)
  Receive Date: 20121226
  Receipt Date: 20121226
  Transmission Date: 20130627
  Serious: Yes (Other)
  Sender: FDA-Public Use
  Company Number: PHHY2012CA116877

PATIENT
  Age: 70 Year
  Sex: Female

DRUGS (1)
  1. DESFERAL [Suspect]
     Indication: IRON OVERLOAD

REACTIONS (4)
  - Cellulitis [Unknown]
  - Thrombocytopenia [Unknown]
  - Neutropenia [Unknown]
  - Serum ferritin increased [Unknown]
